FAERS Safety Report 6952738 (Version 2)
Quarter: 2013Q2

REPORT INFORMATION
  Report Type: Spontaneous
  Country: US (occurrence: LB)
  Receive Date: 20090326
  Receipt Date: 20130301
  Transmission Date: 20140414
  Serious: Yes (Other)
  Sender: FDA-Public Use
  Company Number: LB-AVENTIS-200911442EU

PATIENT
  Sex: Female

DRUGS (8)
  1. SUBUTEX [Suspect]
     Indication: DRUG DEPENDENCE
     Route: 064
     Dates: start: 20070911, end: 20071108
  2. IMMUNOGLOBULIN HUMAN ANTI-RH [Concomitant]
  3. PRENATAL VITAMINS [Concomitant]
  4. CALCIUM [Concomitant]
  5. COLACE [Concomitant]
  6. FOLIC ACID [Concomitant]
  7. FLINTSTONES COMPLETE [Concomitant]
  8. VISTARIL [Concomitant]

REACTIONS (2)
  - PULMONARY EMBOLISM [Fatal]
  - DRUG INEFFECTIVE [Fatal]
